FAERS Safety Report 15165516 (Version 1)
Quarter: 2018Q3

REPORT INFORMATION
  Report Type: Report from Study
  Country: FR (occurrence: FR)
  Receive Date: 20180719
  Receipt Date: 20180719
  Transmission Date: 20181010
  Serious: Yes (Hospitalization)
  Sender: FDA-Public Use
  Company Number: FR-SA-2018SA188407

PATIENT
  Weight: 68 kg

DRUGS (9)
  1. BISOPROLOL [Concomitant]
     Active Substance: BISOPROLOL
     Indication: BLOOD PRESSURE ABNORMAL
     Dosage: 1 DF
     Route: 048
  2. PRAVASTINE [Concomitant]
     Indication: BLOOD CHOLESTEROL INCREASED
     Dosage: 1 DF
     Route: 048
  3. CABAZITAXEL [Suspect]
     Active Substance: CABAZITAXEL
     Dosage: UNK
  4. INCRUSE ELLIPTA [Concomitant]
     Active Substance: UMECLIDINIUM BROMIDE
     Indication: PLEURAL EFFUSION
     Dosage: UNK
     Dates: start: 201707
  5. TRAMADOL. [Concomitant]
     Active Substance: TRAMADOL
     Indication: PAIN
     Dosage: 2 DF
     Route: 048
     Dates: start: 20180206
  6. OXYCODONE [Concomitant]
     Active Substance: OXYCODONE
     Indication: PAIN
     Dosage: 1 DF
     Route: 048
     Dates: start: 20180410
  7. CABAZITAXEL [Suspect]
     Active Substance: CABAZITAXEL
     Dosage: 25 MG/M2
     Dates: start: 20180213, end: 20180612
  8. ENANTONE DIE [Concomitant]
     Dosage: UNK
     Dates: start: 201303
  9. PARACETAMOL [Concomitant]
     Active Substance: ACETAMINOPHEN
     Indication: PAIN
     Dosage: UNK
     Dates: start: 20171214

REACTIONS (2)
  - Fracture [Not Recovered/Not Resolved]
  - Fall [Not Recovered/Not Resolved]

NARRATIVE: CASE EVENT DATE: 20180703
